FAERS Safety Report 6333219-3 (Version None)
Quarter: 2009Q3

REPORT INFORMATION
  Report Type: 
  Country: None (occurrence: None)
  Receive Date: 20090828
  Receipt Date: 20090825
  Transmission Date: 20100115
  Serious: Yes (Life-Threatening)
  Sender: FDA-Public Use
  Company Number: JP-JNJFOC-20090808891

PATIENT
  Sex: Female

DRUGS (6)
  1. ITRIZOLE [Suspect]
     Indication: DRUG USE FOR UNKNOWN INDICATION
     Route: 041
  2. MEROPENEM TRIHYDRATE [Concomitant]
     Indication: POSTRESUSCITATION ENCEPHALOPATHY
     Route: 042
  3. RADICUT [Concomitant]
     Indication: POSTRESUSCITATION ENCEPHALOPATHY
     Route: 042
  4. DIPRIVAN [Concomitant]
     Indication: POSTRESUSCITATION ENCEPHALOPATHY
     Route: 042
  5. CLINDAMYCIN [Concomitant]
     Indication: POSTRESUSCITATION ENCEPHALOPATHY
     Route: 042
  6. PASIL [Concomitant]
     Indication: PNEUMONIA
     Route: 042

REACTIONS (3)
  - ACUTE RESPIRATORY DISTRESS SYNDROME [None]
  - RENAL IMPAIRMENT [None]
  - WHITE BLOOD CELL COUNT DECREASED [None]
